FAERS Safety Report 9137171 (Version 1)
Quarter: 2013Q1

REPORT INFORMATION
  Report Type: Spontaneous
  Country: US (occurrence: US)
  Receive Date: 20130304
  Receipt Date: 20130304
  Transmission Date: 20140127
  Serious: No
  Sender: FDA-Public Use
  Company Number: US-ABBOTT-12P-163-0929655-00

PATIENT
  Age: 49 None
  Sex: 0
  Weight: 115.77 kg

DRUGS (11)
  1. ANDROGEL 1% [Suspect]
     Indication: BLOOD TESTOSTERONE DECREASED
     Dosage: 1 PACKET TWICE A DAY
     Dates: start: 201201
  2. FUZEON [Concomitant]
     Indication: HIV INFECTION
  3. ISSENTRESS [Concomitant]
     Indication: HIV INFECTION
  4. NORVIR [Concomitant]
     Indication: HIV INFECTION
  5. PREVISTA [Concomitant]
     Indication: HIV INFECTION
  6. SUSTIVA [Concomitant]
     Indication: HIV INFECTION
  7. NORCO [Concomitant]
     Indication: PAIN
  8. KADIAN [Concomitant]
     Indication: PAIN
  9. GEMFIBROZIL [Concomitant]
     Indication: BLOOD CHOLESTEROL INCREASED
  10. LIPITOR [Concomitant]
     Indication: BLOOD CHOLESTEROL INCREASED
  11. CLONAZEPAM [Concomitant]
     Indication: PRODUCT USED FOR UNKNOWN INDICATION

REACTIONS (3)
  - Blood urine present [Not Recovered/Not Resolved]
  - Dysuria [Not Recovered/Not Resolved]
  - Penile haemorrhage [Not Recovered/Not Resolved]
